FAERS Safety Report 6705399-9 (Version None)
Quarter: 2010Q2

REPORT INFORMATION
  Report Type: 
  Country: None (occurrence: None)
  Receive Date: 20100503
  Receipt Date: 20100423
  Transmission Date: 20101027
  Serious: Yes (Hospitalization)
  Sender: FDA-Public Use
  Company Number: DE-BIOGENIDEC-2010BI008049

PATIENT
  Age: 42 Year
  Sex: Female
  Weight: 55 kg

DRUGS (2)
  1. AVONEX [Suspect]
     Indication: RELAPSING-REMITTING MULTIPLE SCLEROSIS
     Route: 030
     Dates: start: 20090623, end: 20100225
  2. VIVEO [Concomitant]
     Indication: MUSCLE SPASTICITY
     Route: 048
     Dates: start: 20090101

REACTIONS (2)
  - MOOD DISORDER DUE TO A GENERAL MEDICAL CONDITION [None]
  - SECONDARY PROGRESSIVE MULTIPLE SCLEROSIS [None]
